FAERS Safety Report 4919822-3 (Version None)
Quarter: 2006Q1

REPORT INFORMATION
  Report Type: 
  Country: None (occurrence: None)
  Receive Date: 20060221
  Receipt Date: 20060221
  Transmission Date: 20060701
  Serious: Yes (Other)
  Sender: FDA-Public Use
  Company Number: None

PATIENT
  Sex: Female
  Weight: 45.9 kg

DRUGS (3)
  1. CISPLATIN [Suspect]
     Indication: ENDOMETRIAL CANCER
     Dosage: 78 MG
     Dates: start: 20060119, end: 20060119
  2. DOXORUBICIN HCL [Suspect]
     Dosage: 70 MG
     Dates: start: 20060119, end: 20060119
  3. TAXOL [Suspect]
     Dosage: 248 MG
     Dates: start: 20060120, end: 20060120

REACTIONS (1)
  - NEUTROPHIL COUNT DECREASED [None]
